FAERS Safety Report 8550751-2 (Version None)
Quarter: 2012Q3

REPORT INFORMATION
  Report Type: 
  Country: None (occurrence: None)
  Receive Date: 20120730
  Receipt Date: 20120405
  Transmission Date: 20120928
  Serious: No
  Sender: FDA-Public Use
  Company Number: US-009507513-2012SP016090

PATIENT

DRUGS (6)
  1. CELEBREX [Concomitant]
     Indication: ARTHRITIS
     Dosage: UNK UNK, UNKNOWN
  2. WELLBUTRIN [Concomitant]
     Indication: DEPRESSION
     Dosage: UNK UNK, UNKNOWN
  3. CLARITIN-D [Suspect]
     Indication: NASAL CONGESTION
  4. CLARITIN-D [Suspect]
     Indication: MEDICAL OBSERVATION
     Dosage: UNK UNK, UNKNOWN
     Route: 048
     Dates: start: 20120201
  5. CALCITONIN SALMON [Concomitant]
     Indication: OSTEOPETROSIS
     Dosage: UNK UNK, UNKNOWN
  6. AXERT [Concomitant]
     Indication: MIGRAINE
     Dosage: UNK UNK, UNKNOWN

REACTIONS (4)
  - CONDITION AGGRAVATED [None]
  - SOMNOLENCE [None]
  - FEELING ABNORMAL [None]
  - NO THERAPEUTIC RESPONSE [None]
